FAERS Safety Report 14937273 (Version 1)
Quarter: 2018Q2

REPORT INFORMATION
  Report Type: Spontaneous
  Country: GB (occurrence: GB)
  Receive Date: 20180525
  Receipt Date: 20180525
  Transmission Date: 20180711
  Serious: Yes (Life-Threatening)
  Sender: FDA-Public Use
  Company Number: GB-TEVA-2018-GB-897519

PATIENT
  Age: 22 Year
  Sex: Male
  Weight: 53 kg

DRUGS (1)
  1. PENICILLIN V POTASSIUM. [Suspect]
     Active Substance: PENICILLIN V POTASSIUM
     Route: 065
     Dates: start: 20180321

REACTIONS (2)
  - Swelling face [Unknown]
  - Respiratory tract oedema [Unknown]

NARRATIVE: CASE EVENT DATE: 20180321
